FAERS Safety Report 13136180 (Version 1)
Quarter: 2017Q1

REPORT INFORMATION
  Report Type: Spontaneous
  Country: DK (occurrence: DK)
  Receive Date: 20170121
  Receipt Date: 20170121
  Transmission Date: 20170428
  Serious: Yes (Life-Threatening, Hospitalization, Other)
  Sender: FDA-Public Use
  Company Number: DK-ACCORD-047469

PATIENT
  Age: 68 Year
  Sex: Female

DRUGS (16)
  1. ELTROXIN [Concomitant]
     Active Substance: LEVOTHYROXINE
     Indication: HYPOTHYROIDISM
  2. PANTOPRAZOL ACTAVIS [Concomitant]
     Active Substance: PANTOPRAZOLE SODIUM
     Indication: GASTROOESOPHAGEAL REFLUX DISEASE
  3. ESTRING [Concomitant]
     Active Substance: ESTRADIOL
     Indication: HORMONE REPLACEMENT THERAPY
  4. ATENODAN [Concomitant]
     Indication: HYPERTENSION
     Dates: end: 20161227
  5. ENALAPRIL SANDOZ [Concomitant]
     Active Substance: ENALAPRIL
     Indication: HYPERTENSION
  6. INNOHEP [Concomitant]
     Active Substance: TINZAPARIN SODIUM
     Indication: PULMONARY EMBOLISM
     Dates: start: 20161030
  7. METOPROLOLSUCCINAT HEXAL [Concomitant]
     Active Substance: METOPROLOL SUCCINATE
     Indication: HYPERTENSION
     Dates: start: 20161227
  8. PINEX [Concomitant]
     Active Substance: ACETAMINOPHEN
     Indication: PAIN
  9. SIMVASTATIN ORION [Concomitant]
     Active Substance: SIMVASTATIN
     Indication: HYPERCHOLESTEROLAEMIA
  10. CAPECITABINE ACCORD [Suspect]
     Active Substance: CAPECITABINE
     Indication: OESOPHAGEAL ADENOCARCINOMA
     Dosage: DOSE: VARIABLE, STRENGTH: 150 AND 500 MG
     Route: 048
     Dates: start: 20160616, end: 20161223
  11. OXALIPLATIN ACCORD [Suspect]
     Active Substance: OXALIPLATIN
     Indication: OESOPHAGEAL ADENOCARCINOMA
     Dosage: DOSIS: VARYING
     Route: 042
     Dates: start: 20160616, end: 20161103
  12. EPIRUBICIN TEVA [Suspect]
     Active Substance: EPIRUBICIN
     Indication: OESOPHAGEAL ADENOCARCINOMA
     Dosage: 2 MG/ML. STRENGTH: 100 ML AND 25 ML
     Route: 042
     Dates: start: 20160606, end: 20161103
  13. ALLOPURINOL DAK [Concomitant]
     Indication: BLOOD URIC ACID INCREASED
  14. PIPERACILLIN/TAZOBACTAM SANDOZ [Concomitant]
     Active Substance: PIPERACILLIN SODIUM\TAZOBACTAM SODIUM
     Indication: UROSEPSIS
     Dates: start: 20161223
  15. OXALIPLATIN KABI [Suspect]
     Active Substance: OXALIPLATIN
     Indication: OESOPHAGEAL ADENOCARCINOMA
     Dosage: DOSE: VARYING
     Route: 042
     Dates: start: 20160616, end: 20161103
  16. MABLET [Concomitant]
     Indication: HYPOMAGNESAEMIA

REACTIONS (5)
  - Urosepsis [Recovering/Resolving]
  - Anaemia [Not Recovered/Not Resolved]
  - Confusional state [Recovering/Resolving]
  - Leukopenia [Not Recovered/Not Resolved]
  - Neurotoxicity [Unknown]

NARRATIVE: CASE EVENT DATE: 20161223
